FAERS Safety Report 11499554 (Version 1)
Quarter: 2015Q3

REPORT INFORMATION
  Report Type: Spontaneous
  Country: JP (occurrence: JP)
  Receive Date: 20150914
  Receipt Date: 20150914
  Transmission Date: 20151125
  Serious: Yes (Hospitalization)
  Sender: FDA-Public Use
  Company Number: JP-IPCA LABORATORIES LIMITED-IPC201509-000585

PATIENT
  Age: 9 Year
  Sex: Female

DRUGS (14)
  1. CYCLOPHOSPHAMIDE. [Suspect]
     Active Substance: CYCLOPHOSPHAMIDE
  2. DASATINIB [Concomitant]
     Active Substance: DASATINIB
  3. CYCLOSPORINE. [Suspect]
     Active Substance: CYCLOSPORINE
     Route: 048
  4. CYCLOSPORINE. [Suspect]
     Active Substance: CYCLOSPORINE
     Indication: PROPHYLAXIS AGAINST GRAFT VERSUS HOST DISEASE
     Route: 042
  5. ACYCLOVIR. [Concomitant]
     Active Substance: ACYCLOVIR
  6. IMATINIB [Suspect]
     Active Substance: IMATINIB
     Indication: ACUTE LYMPHOCYTIC LEUKAEMIA
  7. ETOPOSIDE. [Suspect]
     Active Substance: ETOPOSIDE
  8. CYTARABINE. [Concomitant]
     Active Substance: CYTARABINE
  9. IMATINIB [Suspect]
     Active Substance: IMATINIB
  10. SULFAMETHOXAZOLE-TRIMETHOPRIM [Concomitant]
     Active Substance: SULFAMETHOXAZOLE\TRIMETHOPRIM
  11. AMPHOTERICIN B. [Concomitant]
     Active Substance: AMPHOTERICIN B
  12. DASATINIB [Concomitant]
     Active Substance: DASATINIB
  13. ONDANSETRON [Suspect]
     Active Substance: ONDANSETRON
  14. METHOTREXATE [Concomitant]
     Active Substance: METHOTREXATE

REACTIONS (2)
  - Drug-induced liver injury [Recovered/Resolved]
  - Drug interaction [Unknown]
